FAERS Safety Report 13067899 (Version 3)
Quarter: 2017Q1

REPORT INFORMATION
  Report Type: Spontaneous
  Country: FR (occurrence: FR)
  Receive Date: 20161228
  Receipt Date: 20170131
  Transmission Date: 20170428
  Serious: Yes (Hospitalization)
  Sender: FDA-Public Use
  Company Number: FR-TAKEDA-2016MPI010912

PATIENT
  Age: 50 Year
  Sex: Female

DRUGS (7)
  1. BENDAMUSTINE [Suspect]
     Active Substance: BENDAMUSTINE
     Indication: PLASMA CELL MYELOMA
     Dosage: 186 MG, UNK
     Route: 042
     Dates: start: 20160118
  2. ZOPHREN                            /00955301/ [Suspect]
     Active Substance: ONDANSETRON
     Indication: PROPHYLAXIS OF NAUSEA AND VOMITING
     Dosage: 8 MG, UNK
     Route: 042
     Dates: start: 20161128, end: 20161129
  3. DUROGESIC [Concomitant]
     Active Substance: FENTANYL
     Indication: BONE PAIN
     Dosage: UNK
     Route: 062
  4. VELCADE [Suspect]
     Active Substance: BORTEZOMIB
     Indication: PLASMA CELL MYELOMA
     Dosage: 2 MG, UNK
     Route: 058
     Dates: start: 201409
  5. DEXAMETHASONE. [Suspect]
     Active Substance: DEXAMETHASONE
     Indication: PLASMA CELL MYELOMA
     Dosage: 20 MG, UNK
     Route: 048
     Dates: start: 20161128, end: 20161205
  6. BENDAMUSTINE [Suspect]
     Active Substance: BENDAMUSTINE
     Dosage: 186 MG, UNK
     Route: 042
     Dates: start: 20161128, end: 20161129
  7. VELCADE [Suspect]
     Active Substance: BORTEZOMIB
     Dosage: 2 MG, UNK
     Route: 058
     Dates: start: 20161128, end: 20161205

REACTIONS (10)
  - Cerebral vasoconstriction [Recovered/Resolved]
  - Pyrexia [Unknown]
  - Hemiparesis [Recovered/Resolved]
  - Ventricular extrasystoles [Unknown]
  - Off label use [Unknown]
  - Hemianopia homonymous [Unknown]
  - Hypokalaemia [Unknown]
  - Speech disorder [Recovered/Resolved]
  - Confusional state [Recovered/Resolved]
  - White blood cell count decreased [Unknown]

NARRATIVE: CASE EVENT DATE: 20160118
